FAERS Safety Report 12740753 (Version 2)
Quarter: 2016Q4

REPORT INFORMATION
  Report Type: Spontaneous
  Country: FR (occurrence: FR)
  Receive Date: 20160914
  Receipt Date: 20161103
  Transmission Date: 20170207
  Serious: Yes (Other)
  Sender: FDA-Public Use
  Company Number: FR-ROCHE-1829317

PATIENT
  Sex: Female
  Weight: 60 kg

DRUGS (3)
  1. WYSTAMM [Concomitant]
     Active Substance: RUPATADINE FUMARATE
     Indication: CHRONIC SPONTANEOUS URTICARIA
     Dosage: 4 DF, QD
     Route: 048
     Dates: start: 20160531
  2. XOLAIR [Suspect]
     Active Substance: OMALIZUMAB
     Indication: CHRONIC SPONTANEOUS URTICARIA
     Route: 058
  3. MONTELUKAST [Concomitant]
     Active Substance: MONTELUKAST SODIUM
     Indication: CHRONIC SPONTANEOUS URTICARIA
     Dosage: 1 DF, QD
     Route: 048
     Dates: start: 201604

REACTIONS (8)
  - Type I hypersensitivity [Unknown]
  - Chronic spontaneous urticaria [Recovered/Resolved]
  - Hypotension [Unknown]
  - Muscle spasms [Unknown]
  - Blood pressure decreased [Recovered/Resolved]
  - Oedema peripheral [Unknown]
  - Rash [Unknown]
  - Anaphylactoid shock [Recovered/Resolved]
